FAERS Safety Report 10309477 (Version 2)
Quarter: 2014Q3

REPORT INFORMATION
  Report Type: Spontaneous
  Country: KE (occurrence: KE)
  Receive Date: 20140717
  Receipt Date: 20140721
  Transmission Date: 20150326
  Serious: Yes (Death)
  Sender: FDA-Public Use
  Company Number: KE-ROCHE-1436056

PATIENT
  Age: 84 Year
  Sex: Male

DRUGS (2)
  1. EPOETIN BETA [Suspect]
     Active Substance: ERYTHROPOIETIN
     Indication: PRODUCT USED FOR UNKNOWN INDICATION
     Route: 065
  2. CARBAMAZEPINE. [Concomitant]
     Active Substance: CARBAMAZEPINE

REACTIONS (2)
  - Cardiac arrest [Fatal]
  - Diabetic complication [Fatal]
